FAERS Safety Report 13188250 (Version 1)
Quarter: 2017Q1

REPORT INFORMATION
  Report Type: Spontaneous
  Country: US (occurrence: US)
  Receive Date: 20170205
  Receipt Date: 20170205
  Transmission Date: 20170428
  Serious: No
  Sender: FDA-Public Use
  Company Number: None

PATIENT
  Age: 16 Month
  Sex: Male
  Weight: 9.5 kg

DRUGS (1)
  1. KEPPRA [Suspect]
     Active Substance: LEVETIRACETAM
     Indication: FEBRILE CONVULSION
     Route: 048

REACTIONS (4)
  - Respiratory syncytial virus infection [None]
  - Pneumonia [None]
  - Ear infection [None]
  - Hypothermia [None]

NARRATIVE: CASE EVENT DATE: 20170205
